FAERS Safety Report 14197995 (Version 1)
Quarter: 2017Q4

REPORT INFORMATION
  Report Type: Other
  Country: JP (occurrence: JP)
  Receive Date: 20171117
  Receipt Date: 20171117
  Transmission Date: 20180321
  Serious: Yes (Hospitalization)
  Sender: FDA-Public Use
  Company Number: JP-TAKEDA-2017TJP023704

PATIENT

DRUGS (8)
  1. TAKEPRON OD TABLETS 15 [Suspect]
     Active Substance: LANSOPRAZOLE
     Indication: PRODUCT USED FOR UNKNOWN INDICATION
     Dosage: 15 MG, BID
     Route: 048
  2. NESINA [Suspect]
     Active Substance: ALOGLIPTIN BENZOATE
     Indication: DIABETES MELLITUS
     Dosage: 25 MG, QD
     Route: 048
  3. CEROCRAL [Concomitant]
     Active Substance: IFENPRODIL
     Dosage: 20 MG, TID
     Route: 048
  4. CADUET [Concomitant]
     Active Substance: AMLODIPINE BESYLATE\ATORVASTATIN CALCIUM
     Dosage: 1 DF, QD
     Route: 048
  5. ZYLORIC [Concomitant]
     Active Substance: ALLOPURINOL
     Dosage: 100 MG, QD
     Route: 048
  6. SEIBULE [Concomitant]
     Active Substance: MIGLITOL
     Dosage: 50 MG, TID
     Route: 048
  7. MICAMLO [Concomitant]
     Active Substance: AMLODIPINE BESYLATE\TELMISARTAN
     Dosage: 1 DF, QD
     Route: 048
  8. MAINTATE [Concomitant]
     Active Substance: BISOPROLOL FUMARATE
     Dosage: 2.5 MG, QD
     Route: 048

REACTIONS (32)
  - Dysphonia [Unknown]
  - Visual acuity reduced [Unknown]
  - Irregular breathing [Unknown]
  - Headache [Unknown]
  - Memory impairment [Unknown]
  - Ear discomfort [Unknown]
  - Eye pain [Unknown]
  - Dizziness [Unknown]
  - Judgement impaired [Unknown]
  - Somnolence [Unknown]
  - Chest pain [Unknown]
  - Vasodilatation [Unknown]
  - Hypoacusis [Unknown]
  - Back pain [Unknown]
  - Dizziness postural [Unknown]
  - Ear pain [Unknown]
  - Large intestinal polypectomy [Unknown]
  - Decreased appetite [Unknown]
  - Insomnia [Unknown]
  - Movement disorder [Unknown]
  - Pruritus [Unknown]
  - Gait disturbance [Unknown]
  - Nausea [Unknown]
  - Neck pain [Unknown]
  - Mental impairment [Unknown]
  - Neuralgia [Unknown]
  - Mental disorder [Unknown]
  - Muscle tightness [Unknown]
  - Vision blurred [Unknown]
  - Feeling abnormal [Unknown]
  - Palpitations [Unknown]
  - Musculoskeletal stiffness [Unknown]
